FAERS Safety Report 8523516-5 (Version None)
Quarter: 2012Q3

REPORT INFORMATION
  Report Type: 
  Country: None (occurrence: None)
  Receive Date: 20120720
  Receipt Date: 20120712
  Transmission Date: 20120928
  Serious: Yes (Other)
  Sender: FDA-Public Use
  Company Number: CA-JNJFOC-20120707149

PATIENT
  Sex: Male

DRUGS (9)
  1. CELEBREX [Concomitant]
     Route: 065
  2. PAIN KILLERS [Concomitant]
     Route: 065
  3. REMICADE [Suspect]
     Route: 042
     Dates: start: 20120712
  4. AZATHIOPRINE [Concomitant]
     Route: 065
  5. REMICADE [Suspect]
     Indication: CROHN'S DISEASE
     Route: 042
  6. CREON [Concomitant]
     Route: 065
  7. RABEPRAZOLE SODIUM [Concomitant]
     Route: 065
  8. PENTASA [Concomitant]
     Route: 065
  9. CIPROFLOXACIN HCL [Concomitant]
     Route: 065

REACTIONS (1)
  - HERNIA [None]
